FAERS Safety Report 21060818 (Version 1)
Quarter: 2022Q3

REPORT INFORMATION
  Report Type: Spontaneous
  Country: PT (occurrence: PT)
  Receive Date: 20220709
  Receipt Date: 20220709
  Transmission Date: 20221027
  Serious: Yes (Other)
  Sender: FDA-Public Use
  Company Number: None

PATIENT
  Age: 51 Year
  Sex: Female

DRUGS (13)
  1. VORICONAZOLE [Suspect]
     Active Substance: VORICONAZOLE
     Indication: Aspergillus infection
     Dosage: 400 MILLIGRAM DAILY; UNIT DOSE:400MG,  400 MG FOR 24H AND THEN 250 MG ID, FREQUENCY TIME: 1 DAYS, DU
     Route: 048
     Dates: start: 20220531, end: 20220531
  2. VORICONAZOLE [Suspect]
     Active Substance: VORICONAZOLE
     Dosage: UNIT DOSE: 250MG, FREQUENCY TIME: 1 DAYS, DURATION: 2 DAYS, 400 MG FOR 24H AND THEN 250 MG ID
     Route: 048
     Dates: start: 20220601, end: 20220603
  3. COLISTIMETHATE SODIUM [Concomitant]
     Active Substance: COLISTIMETHATE SODIUM
     Indication: Product used for unknown indication
     Dosage: STRENGTH:1000000 IU
     Route: 055
     Dates: start: 201907
  4. SPIRONOLACTONE [Concomitant]
     Active Substance: SPIRONOLACTONE
     Indication: Product used for unknown indication
     Dosage: 25 MG ID, STRENGTH: 25MG, FREQUENCY TIME: 1 DAYS
     Route: 048
  5. PREDNISOLONE [Concomitant]
     Active Substance: PREDNISOLONE
     Indication: Product used for unknown indication
     Dosage: UNIT DOSE: 10MG, FREQUENCY TIME: 1 DAYS
     Route: 048
  6. BUDESONIDE [Concomitant]
     Active Substance: BUDESONIDE
     Indication: Product used for unknown indication
     Dosage: INHALATION POWDER, CAPSULE
     Route: 055
  7. Calcitab [Concomitant]
     Indication: Product used for unknown indication
     Dosage: STRENGTH: 1500MG
     Route: 048
  8. HYDROXYZINE [Concomitant]
     Active Substance: HYDROXYZINE HYDROCHLORIDE
     Indication: Product used for unknown indication
     Route: 048
  9. ALBUTEROL [Concomitant]
     Active Substance: ALBUTEROL
     Indication: Product used for unknown indication
     Dosage: 1 NEBULIZATION WITH SALBUTAMOL 8/8H
     Route: 055
  10. FLUIMUCIL [Concomitant]
     Active Substance: ACETYLCYSTEINE
     Indication: Product used for unknown indication
     Dosage: 2ID, FREQUENCY TIME: 1 DAYS
     Route: 048
  11. LASIX [Concomitant]
     Active Substance: FUROSEMIDE
     Indication: Product used for unknown indication
     Dosage: STRENGTH: 40MG, UNIT DOSE: 80MG, FREQUENCY TIME: 1 DAYS
     Route: 048
  12. COLISTIMETHATE SODIUM [Concomitant]
     Active Substance: COLISTIMETHATE SODIUM
     Indication: Product used for unknown indication
     Dosage: STRENGTH: 1662500 IU, INHALATION POWDER, CAPSULE
     Route: 055
     Dates: start: 201907
  13. GLYCOPYRRONIUM\INDACATEROL [Concomitant]
     Active Substance: GLYCOPYRRONIUM\INDACATEROL
     Indication: Product used for unknown indication
     Dosage: FOR ACTIVE INGREDIENT GLYCOPYRRONIUM BROMIDE THE STRENGTH IS 43 MICROGRAM AND INDACATEROL, MALEATE T
     Route: 055

REACTIONS (2)
  - Hallucination, visual [Recovered/Resolved]
  - Muscle spasms [Recovered/Resolved]

NARRATIVE: CASE EVENT DATE: 20220602
